FAERS Safety Report 16087009 (Version 8)
Quarter: 2022Q4

REPORT INFORMATION
  Report Type: Spontaneous
  Country: CA (occurrence: CA)
  Receive Date: 20190318
  Receipt Date: 20221006
  Transmission Date: 20230112
  Serious: Yes (Other)
  Sender: FDA-Public Use
  Company Number: CA-009507513-1903CAN006484

PATIENT
  Sex: Male

DRUGS (12)
  1. TEMODAL [Suspect]
     Active Substance: TEMOZOLOMIDE
     Indication: Pancreatic neuroendocrine tumour metastatic
     Dosage: DOSAGE FORM: NOT SPECIFIED
     Route: 065
  2. AFINITOR [Suspect]
     Active Substance: EVEROLIMUS
     Indication: Pancreatic neuroendocrine tumour metastatic
     Dosage: UNK
     Route: 065
  3. CAPECITABINE [Suspect]
     Active Substance: CAPECITABINE
     Indication: Pancreatic neuroendocrine tumour metastatic
     Dosage: DOSAGE FORM: SOLUTION INTRAVENOUS
     Route: 042
  4. CAPECITABINE [Suspect]
     Active Substance: CAPECITABINE
     Dosage: DOSAGE FORM: NOT SPECIFIED
     Route: 048
  5. CAPECITABINE [Suspect]
     Active Substance: CAPECITABINE
     Dosage: DOSAGE FORM: NOT SPECIFIED
     Route: 065
  6. CARBOPLATIN [Suspect]
     Active Substance: CARBOPLATIN
     Indication: Pancreatic neuroendocrine tumour metastatic
     Dosage: DOSAGE FORM: SOLUTION INTRAVENOUS
     Route: 065
  7. ETOPOSIDE [Suspect]
     Active Substance: ETOPOSIDE
     Indication: Pancreatic neuroendocrine tumour metastatic
     Dosage: DOSAGE FORM: NOT SPECIFIED
     Route: 065
  8. ETOPOSIDE [Suspect]
     Active Substance: ETOPOSIDE
     Indication: Product used for unknown indication
  9. SANDOSTATIN [Suspect]
     Active Substance: OCTREOTIDE ACETATE
     Indication: Pancreatic neuroendocrine tumour metastatic
     Dosage: DOSAGE FORM: SOLUTION INTRAVENOUS
     Route: 065
  10. SANDOSTATIN [Suspect]
     Active Substance: OCTREOTIDE ACETATE
     Dosage: DOSAGE FORM: SOLUTION INTRAVENOUS
     Route: 065
  11. SANDOSTATIN [Suspect]
     Active Substance: OCTREOTIDE ACETATE
     Dosage: DOSAGE FORM: NOT SPECIFIED
     Route: 065
  12. LANREOTIDE ACETATE [Concomitant]
     Active Substance: LANREOTIDE ACETATE
     Dosage: UNK

REACTIONS (6)
  - Malignant neoplasm progression [Unknown]
  - Pancreatic neuroendocrine tumour metastatic [Unknown]
  - Treatment failure [Unknown]
  - Toxicity to various agents [Unknown]
  - Product use in unapproved indication [Unknown]
  - Off label use [Unknown]
